FAERS Safety Report 7086337-9 (Version None)
Quarter: 2010Q4

REPORT INFORMATION
  Report Type: 
  Country: None (occurrence: None)
  Receive Date: 20101028
  Receipt Date: 20101020
  Transmission Date: 20110411
  Serious: Yes (Other)
  Sender: FDA-Public Use
  Company Number: AXC-2010-000272

PATIENT

DRUGS (1)
  1. MESALAMINE [Suspect]
     Indication: CROHN'S DISEASE

REACTIONS (2)
  - DISEASE RECURRENCE [None]
  - JC VIRUS INFECTION [None]
